FAERS Safety Report 7207372-3 (Version None)
Quarter: 2010Q4

REPORT INFORMATION
  Report Type: 
  Country: None (occurrence: None)
  Receive Date: 20101221
  Receipt Date: 20101206
  Transmission Date: 20110411
  Serious: Yes (Hospitalization, Other)
  Sender: FDA-Public Use
  Company Number: DSJ-2010-18541

PATIENT
  Age: 8 Decade
  Sex: Female

DRUGS (6)
  1. BENICAR HCT [Suspect]
     Indication: HYPERTENSION
     Dosage: 40/12.5 MG (1 IN 1 D), PER ORAL
     Route: 048
     Dates: start: 20050101
  2. AMIODARONE [Concomitant]
  3. ACETYLSALICYLIC ACID [Concomitant]
  4. ROSUVASTATIN [Concomitant]
  5. ALLOPURINOL [Concomitant]
  6. LEVOTHYROXINE SODIUM [Concomitant]

REACTIONS (7)
  - DIZZINESS [None]
  - FALL [None]
  - FATIGUE [None]
  - FUNGAL INFECTION [None]
  - OEDEMA [None]
  - RENAL CYST [None]
  - WRIST FRACTURE [None]
